FAERS Safety Report 14777331 (Version 1)
Quarter: 2018Q2

REPORT INFORMATION
  Report Type: Spontaneous
  Country: US (occurrence: US)
  Receive Date: 20180419
  Receipt Date: 20180419
  Transmission Date: 20180711
  Serious: No
  Sender: FDA-Public Use
  Company Number: US-LUPIN PHARMACEUTICALS INC.-2018-00548

PATIENT
  Age: 38 Year
  Sex: Female

DRUGS (1)
  1. MY WAY [Suspect]
     Active Substance: LEVONORGESTREL
     Indication: ORAL CONTRACEPTION
     Dosage: 1.5 MG, QD
     Route: 065
     Dates: start: 20180101

REACTIONS (5)
  - Muscle spasms [Recovering/Resolving]
  - Breast tenderness [Recovering/Resolving]
  - Headache [Recovering/Resolving]
  - Menstruation delayed [Recovering/Resolving]
  - Constipation [Recovering/Resolving]

NARRATIVE: CASE EVENT DATE: 20180125
